FAERS Safety Report 8295210-X (Version None)
Quarter: 2012Q2

REPORT INFORMATION
  Report Type: 
  Country: None (occurrence: None)
  Receive Date: 20120418
  Receipt Date: 20120408
  Transmission Date: 20120825
  Serious: Yes (Death, Hospitalization)
  Sender: FDA-Public Use
  Company Number: PH-BAXTER-2012BAX002568

PATIENT
  Sex: Female

DRUGS (1)
  1. DIANEAL PD-2 W/ DEXTROSE 1.5% [Suspect]
     Route: 033
     Dates: start: 20070101

REACTIONS (4)
  - ACUTE RESPIRATORY FAILURE [None]
  - HYPOPHAGIA [None]
  - HYPERTENSION [None]
  - ASTHENIA [None]
